FAERS Safety Report 7959776-9 (Version None)
Quarter: 2011Q4

REPORT INFORMATION
  Report Type: 
  Country: None (occurrence: None)
  Receive Date: 20111206
  Receipt Date: 20111121
  Transmission Date: 20120403
  Serious: Yes (Hospitalization, Other)
  Sender: FDA-Public Use
  Company Number: DE-TEVA-310099GER

PATIENT
  Age: 0 Year
  Sex: Male

DRUGS (3)
  1. FOLSAURE [Concomitant]
     Route: 064
  2. LAMOTRIGINE [Suspect]
     Route: 064
  3. KALIUMJODID [Concomitant]
     Route: 064

REACTIONS (1)
  - SOMNOLENCE [None]
